FAERS Safety Report 9170501 (Version 1)
Quarter: 2013Q1

REPORT INFORMATION
  Report Type: Spontaneous
  Country: US (occurrence: None)
  Receive Date: 20130312
  Receipt Date: 20130312
  Transmission Date: 20140127
  Serious: No
  Sender: FDA-Public Use
  Company Number: US-ALSI-201300042

PATIENT
  Age: 70 Year
  Sex: Female

DRUGS (11)
  1. OXYGEN [Suspect]
     Dosage: 100% RESPIRATORY
  2. ACETYLSALICYLIC ACID [Concomitant]
  3. OMEPRAZOLE [Concomitant]
  4. ATENOLOL [Concomitant]
  5. LISINOPRIL [Concomitant]
  6. MONTELUKAST [Concomitant]
  7. SALMETEROL: FLUTICASONE [Concomitant]
  8. ESTROPIPATE [Concomitant]
  9. VITAMIN D NOS [Concomitant]
  10. CALCIUM [Concomitant]
  11. PETHIDINE [Concomitant]

REACTIONS (2)
  - Myositis [None]
  - Dysphagia [None]
